FAERS Safety Report 4564565-1 (Version None)
Quarter: 2005Q1

REPORT INFORMATION
  Report Type: 
  Country: None (occurrence: None)
  Receive Date: 20050126
  Receipt Date: 20050113
  Transmission Date: 20050727
  Serious: Yes (Other)
  Sender: FDA-Public Use
  Company Number: HQWYE646217JAN05

PATIENT
  Age: 45 Year
  Sex: Male

DRUGS (12)
  1. EFFEXOR [Suspect]
     Indication: DEPRESSION
     Dosage: 300 MG 1 X PER 1 DAY
     Dates: start: 20040731
  2. VALIUM [Suspect]
     Dosage: SEE IMAGE
     Dates: start: 20040625, end: 20040701
  3. VALIUM [Suspect]
     Dosage: SEE IMAGE
     Dates: start: 20040702, end: 20040702
  4. VALIUM [Suspect]
     Dosage: SEE IMAGE
     Dates: start: 20040703, end: 20040705
  5. VALIUM [Suspect]
     Dosage: SEE IMAGE
     Dates: start: 20040706, end: 20040727
  6. VALIUM [Suspect]
     Dosage: SEE IMAGE
     Dates: start: 20040728, end: 20040810
  7. VALIUM [Suspect]
     Dosage: SEE IMAGE
     Dates: start: 20040811, end: 20040820
  8. VALIUM [Suspect]
     Dosage: SEE IMAGE
     Dates: start: 20040831, end: 20040909
  9. VALIUM [Suspect]
     Dosage: SEE IMAGE
     Dates: start: 20040910, end: 20041101
  10. VALIUM [Suspect]
     Dosage: SEE IMAGE
     Dates: start: 20041102
  11. REMERON [Concomitant]
  12. OLFEN (DICLOFENAC) [Concomitant]

REACTIONS (11)
  - AMNESIA [None]
  - ARTHRALGIA [None]
  - BACK PAIN [None]
  - BLOOD LACTATE DEHYDROGENASE INCREASED [None]
  - BLOOD PRESSURE INCREASED [None]
  - CONTUSION [None]
  - FALL [None]
  - HEADACHE [None]
  - STRESS [None]
  - SUICIDE ATTEMPT [None]
  - SYNCOPE [None]
